FAERS Safety Report 23794603 (Version 1)
Quarter: 2024Q2

REPORT INFORMATION
  Report Type: Report from Study
  Country: US (occurrence: US)
  Receive Date: 20240429
  Receipt Date: 20240429
  Transmission Date: 20240715
  Serious: Yes (Other)
  Sender: FDA-Public Use
  Company Number: US-ARGENX-2023-ARGX-US003327

PATIENT

DRUGS (4)
  1. VYVGART [Suspect]
     Active Substance: EFGARTIGIMOD ALFA-FCAB
     Indication: Myasthenia gravis
     Dosage: 10 MG/KG
     Route: 042
     Dates: start: 20230816, end: 20230906
  2. VYVGART [Suspect]
     Active Substance: EFGARTIGIMOD ALFA-FCAB
     Dosage: 1079 MG, 1/WEEK
     Route: 042
     Dates: start: 20230929
  3. VYVGART [Suspect]
     Active Substance: EFGARTIGIMOD ALFA-FCAB
     Dosage: UNK UNK, 1/WEEK
     Route: 042
     Dates: start: 20231005
  4. VYVGART [Suspect]
     Active Substance: EFGARTIGIMOD ALFA-FCAB
     Dosage: 10 MG, 1/WEEK (400MG/20ML)
     Route: 042

REACTIONS (6)
  - Myasthenia gravis [Unknown]
  - Myasthenia gravis [Unknown]
  - Symptom recurrence [Recovering/Resolving]
  - Off label use [Unknown]
  - Myasthenia gravis [Recovered/Resolved]
  - Therapeutic response shortened [Unknown]
